FAERS Safety Report 9592870 (Version 3)
Quarter: 2014Q1

REPORT INFORMATION
  Report Type: Spontaneous
  Country: US (occurrence: US)
  Receive Date: 20131004
  Receipt Date: 20140106
  Transmission Date: 20141002
  Serious: Yes (Other)
  Sender: FDA-Public Use
  Company Number: US-BAYER-2013-119725

PATIENT
  Age: 29 Year
  Sex: Female

DRUGS (1)
  1. MIRENA [Suspect]
     Dosage: 20 MCG/24HR, CONT
     Route: 015
     Dates: start: 20110706, end: 20130921

REACTIONS (7)
  - Embedded device [None]
  - Device breakage [None]
  - Complication of device removal [None]
  - Device difficult to use [None]
  - Discomfort [None]
  - Bacterial vaginosis [None]
  - Vaginal discharge [None]
